FAERS Safety Report 15849240 (Version 2)
Quarter: 2019Q1

REPORT INFORMATION
  Report Type: Report from Study
  Country: SI (occurrence: SI)
  Receive Date: 20190121
  Receipt Date: 20190124
  Transmission Date: 20190417
  Serious: Yes (Hospitalization, Other)
  Sender: FDA-Public Use
  Company Number: SI-BAYER-2018-067554

PATIENT
  Age: 64 Year
  Sex: Male

DRUGS (5)
  1. AMPRIL [Concomitant]
     Dosage: DAILY DOSE 5 MG
  2. NEXAVAR [Suspect]
     Active Substance: SORAFENIB
     Indication: HEPATOCELLULAR CARCINOMA
     Dosage: 400 MG, BID
     Dates: start: 2018, end: 20181106
  3. ELTROXIN [Concomitant]
     Active Substance: LEVOTHYROXINE
     Dosage: DAILY DOSE 50 MG
  4. NEXAVAR [Suspect]
     Active Substance: SORAFENIB
     Indication: HEPATOCELLULAR CARCINOMA
     Dosage: DAILY DOSE 800 MG
     Dates: start: 201803, end: 20180428
  5. PANTOPRAZOLE SODIUM. [Concomitant]
     Active Substance: PANTOPRAZOLE SODIUM
     Dosage: 20 MG, QD

REACTIONS (13)
  - Urinary tract infection [Recovered/Resolved]
  - Metastases to kidney [Not Recovered/Not Resolved]
  - Pyelonephritis acute [None]
  - Pyrexia [Recovered/Resolved]
  - Skin reaction [Not Recovered/Not Resolved]
  - Venous thrombosis [Not Recovered/Not Resolved]
  - Skin reaction [Not Recovered/Not Resolved]
  - Stomatitis [Not Recovered/Not Resolved]
  - Hepatocellular carcinoma [Not Recovered/Not Resolved]
  - Abdominal pain [Not Recovered/Not Resolved]
  - Diarrhoea [Not Recovered/Not Resolved]
  - Inflammation [Recovering/Resolving]
  - Haematemesis [Not Recovered/Not Resolved]

NARRATIVE: CASE EVENT DATE: 2018
